FAERS Safety Report 14646264 (Version 2)
Quarter: 2018Q2

REPORT INFORMATION
  Report Type: Report from Study
  Country: None (occurrence: US)
  Receive Date: 20180316
  Receipt Date: 20180404
  Transmission Date: 20180711
  Serious: Yes (Hospitalization, Other)
  Sender: FDA-Public Use
  Company Number: US-BAUSCH-BL-2018-006710

PATIENT
  Age: 45 Year
  Sex: Male

DRUGS (1)
  1. XIFAXAN [Suspect]
     Active Substance: RIFAXIMIN
     Indication: PRODUCT USED FOR UNKNOWN INDICATION
     Dosage: 1 PILL TWO TIMES A DAY
     Route: 065

REACTIONS (6)
  - Staphylococcal infection [Unknown]
  - Liver disorder [Unknown]
  - Anxiety [Unknown]
  - Dizziness [Unknown]
  - Treatment noncompliance [Unknown]
  - Hepatic encephalopathy [Unknown]

NARRATIVE: CASE EVENT DATE: 20180328
